FAERS Safety Report 7630605-6 (Version None)
Quarter: 2011Q3

REPORT INFORMATION
  Report Type: 
  Country: None (occurrence: None)
  Receive Date: 20110722
  Receipt Date: 20110711
  Transmission Date: 20111222
  Serious: Yes (Other)
  Sender: FDA-Public Use
  Company Number: US-ELI_LILLY_AND_COMPANY-US201107003192

PATIENT
  Age: 68 Year
  Sex: Male

DRUGS (3)
  1. SAXAGLIPTIN [Concomitant]
     Dosage: 2.5 MG, QD
  2. LEVEMIR [Concomitant]
     Dosage: 18 U, EACH EVENING
  3. HUMALOG [Suspect]
     Dosage: UNK UNK, PRN
     Dates: start: 20101001

REACTIONS (9)
  - INCORRECT DOSE ADMINISTERED [None]
  - PARKINSON'S DISEASE [None]
  - DEMENTIA ALZHEIMER'S TYPE [None]
  - PANCREATIC DISORDER [None]
  - BLOOD PRESSURE INCREASED [None]
  - VISUAL FIELD DEFECT [None]
  - RENAL FAILURE [None]
  - CHRONIC OBSTRUCTIVE PULMONARY DISEASE [None]
  - VISUAL ACUITY REDUCED [None]
